FAERS Safety Report 14274007 (Version 1)
Quarter: 2017Q4

REPORT INFORMATION
  Report Type: Spontaneous
  Country: JP (occurrence: JP)
  Receive Date: 20171211
  Receipt Date: 20171211
  Transmission Date: 20180321
  Serious: Yes (Death, Hospitalization)
  Sender: FDA-Public Use
  Company Number: JP-OTSUKA-JP-2011-10980

PATIENT
  Age: 41 Year
  Sex: Female
  Weight: 45 kg

DRUGS (5)
  1. ABILIFY [Suspect]
     Active Substance: ARIPIPRAZOLE
     Indication: PRODUCT USED FOR UNKNOWN INDICATION
     Dosage: 12 MG, BID
     Route: 048
     Dates: start: 20110615, end: 20110617
  2. LENDORMIN [Suspect]
     Active Substance: BROTIZOLAM
     Indication: PRODUCT USED FOR UNKNOWN INDICATION
     Dosage: 0.25 MG, QD
     Route: 048
     Dates: start: 20110615, end: 20110617
  3. RISPERDAL [Suspect]
     Active Substance: RISPERIDONE
     Indication: PRODUCT USED FOR UNKNOWN INDICATION
     Dosage: 3 MG, BID
     Route: 048
     Dates: start: 20110618, end: 20110619
  4. ABILIFY [Suspect]
     Active Substance: ARIPIPRAZOLE
     Dosage: 144 MG, QD
     Route: 048
     Dates: start: 20110617, end: 20110617
  5. LENDORMIN [Suspect]
     Active Substance: BROTIZOLAM
     Dosage: 3 MG, QD
     Route: 048
     Dates: start: 20110617, end: 20110617

REACTIONS (4)
  - Hallucination, auditory [Unknown]
  - Completed suicide [Fatal]
  - Lethargy [Recovered/Resolved]
  - Intentional overdose [Unknown]

NARRATIVE: CASE EVENT DATE: 20110617
